FAERS Safety Report 7245635-6 (Version None)
Quarter: 2011Q1

REPORT INFORMATION
  Report Type: 
  Country: None (occurrence: None)
  Receive Date: 20110126
  Receipt Date: 20100115
  Transmission Date: 20110831
  Serious: No
  Sender: FDA-Public Use
  Company Number: US-BAUSCH-2010BL000285

PATIENT
  Age: 2 Year
  Sex: Female

DRUGS (4)
  1. NEOMYCIN AND POLYMXIN B SULFATES AND HYDROCORTISONE [Suspect]
     Route: 001
     Dates: start: 20100115, end: 20100115
  2. NEOMYCIN AND POLYMXIN B SULFATES AND HYDROCORTISONE [Suspect]
     Route: 001
     Dates: start: 20100114, end: 20100114
  3. NEOMYCIN AND POLYMXIN B SULFATES AND HYDROCORTISONE [Suspect]
     Indication: EAR INFECTION
     Route: 001
     Dates: start: 20100113, end: 20100113
  4. AMOXICILLIN [Concomitant]
     Indication: EAR INFECTION
     Route: 048
     Dates: start: 20100113

REACTIONS (3)
  - WRONG DRUG ADMINISTERED [None]
  - DRUG DISPENSING ERROR [None]
  - EAR DISCOMFORT [None]
